FAERS Safety Report 9559290 (Version 1)
Quarter: 2013Q3

REPORT INFORMATION
  Report Type: Spontaneous
  Country: US (occurrence: None)
  Receive Date: 20130924
  Receipt Date: 20130924
  Transmission Date: 20140515
  Serious: Yes (Hospitalization, Other)
  Sender: FDA-Public Use
  Company Number: FK201304342

PATIENT
  Sex: Male

DRUGS (1)
  1. GEMCITABINE [Suspect]
     Indication: ADENOCARCINOMA PANCREAS
     Dosage: WEEKLY FOR THREE DOSES

REACTIONS (3)
  - Thrombocytopenia [None]
  - Gouty arthritis [None]
  - Gout [None]
